FAERS Safety Report 9890965 (Version 1)
Quarter: 2014Q1

REPORT INFORMATION
  Report Type: Spontaneous
  Country: FR (occurrence: None)
  Receive Date: 20140210
  Receipt Date: 20140210
  Transmission Date: 20141002
  Serious: Yes (Other)
  Sender: FDA-Public Use
  Company Number: ADR-2014-00214

PATIENT
  Age: 35 Year
  Sex: Male

DRUGS (2)
  1. BACLOFEN [Suspect]
     Indication: ALCOHOL USE
     Dosage: 210 MG/DAY
  2. ALCOHOL (ETHANOL) [Suspect]

REACTIONS (8)
  - Suicide attempt [None]
  - Lactic acidosis [None]
  - Hypoxia [None]
  - Confusional state [None]
  - Delirium [None]
  - Rhabdomyolysis [None]
  - Alcohol withdrawal syndrome [None]
  - Nervous system disorder [None]
